FAERS Safety Report 14269249 (Version 1)
Quarter: 2017Q4

REPORT INFORMATION
  Report Type: Spontaneous
  Country: NL (occurrence: NL)
  Receive Date: 20171211
  Receipt Date: 20171211
  Transmission Date: 20180321
  Serious: Yes (Hospitalization, Other)
  Sender: FDA-Public Use
  Company Number: NL-OTSUKA-2017_022642

PATIENT
  Sex: Male

DRUGS (1)
  1. ABILIFY [Suspect]
     Active Substance: ARIPIPRAZOLE
     Indication: ACUTE PSYCHOSIS
     Dosage: 1 DF, UNK
     Route: 065

REACTIONS (3)
  - Product use in unapproved indication [Unknown]
  - Gambling [Recovered/Resolved]
  - Suicidal ideation [Unknown]
